FAERS Safety Report 9295559 (Version 1)
Quarter: 2013Q2

REPORT INFORMATION
  Report Type: Other
  Country: US (occurrence: US)
  Receive Date: 20130517
  Receipt Date: 20130517
  Transmission Date: 20140414
  Serious: Yes (Death)
  Sender: FDA-Public Use
  Company Number: US-SHIRE-ALL1-2013-03178

PATIENT
  Age: 72 Year
  Sex: Male

DRUGS (1)
  1. FOSRENOL [Suspect]
     Indication: RENAL FAILURE CHRONIC
     Dosage: 1000 MG, UNKNOWN(6 TIMES DAILY)
     Route: 048
     Dates: start: 201202, end: 2013

REACTIONS (2)
  - Death [Fatal]
  - Overdose [Recovered/Resolved]
